FAERS Safety Report 4715808-2 (Version None)
Quarter: 2005Q3

REPORT INFORMATION
  Report Type: 
  Country: None (occurrence: None)
  Receive Date: 20050715
  Receipt Date: 20050715
  Transmission Date: 20060218
  Serious: Yes (Life-Threatening)
  Sender: FDA-Public Use
  Company Number: None

PATIENT
  Sex: Male

DRUGS (16)
  1. HEPARIN [Suspect]
     Indication: THROMBOPHLEBITIS SUPERFICIAL
     Dosage: INTRAVENOU
     Route: 042
     Dates: start: 20050224, end: 20050304
  2. ALBUTEROL [Concomitant]
  3. ASPIRIN [Concomitant]
  4. CARVEDILOL [Concomitant]
  5. DILTIAZEM [Concomitant]
  6. DOCUSATE [Concomitant]
  7. GUAFENESIN SYRUP [Concomitant]
  8. HYDRALAZINE [Concomitant]
  9. INSULIN [Concomitant]
  10. IPRATROPIUM BROMIDE [Concomitant]
  11. ISOSORBIDE MONONITRATE [Concomitant]
  12. METHYLPREDNISOLONE [Concomitant]
  13. OMEPRAZOLE [Concomitant]
  14. SENNOSIDES [Concomitant]
  15. TERAZOSIN HCL [Concomitant]
  16. VANCOMYCIN [Concomitant]

REACTIONS (1)
  - THROMBOCYTOPENIA [None]
